FAERS Safety Report 8341547-5 (Version None)
Quarter: 2012Q2

REPORT INFORMATION
  Report Type: 
  Country: None (occurrence: None)
  Receive Date: 20120507
  Receipt Date: 20100422
  Transmission Date: 20120825
  Serious: No
  Sender: FDA-Public Use
  Company Number: US-TEVA-2010001472

PATIENT
  Sex: Male
  Weight: 83.99 kg

DRUGS (1)
  1. TREANDA [Suspect]
     Indication: CHRONIC LYMPHOCYTIC LEUKAEMIA
     Dosage: 200 MILLIGRAM;
     Route: 042
     Dates: start: 20100301, end: 20100302

REACTIONS (2)
  - PHLEBITIS [None]
  - INFUSION SITE PAIN [None]
